FAERS Safety Report 7939180-X (Version None)
Quarter: 2011Q4

REPORT INFORMATION
  Report Type: 
  Country: None (occurrence: None)
  Receive Date: 20111124
  Receipt Date: 20111114
  Transmission Date: 20120403
  Serious: Yes (Other)
  Sender: FDA-Public Use
  Company Number: CA-BRISTOL-MYERS SQUIBB COMPANY-16247926

PATIENT
  Age: 8 Year
  Sex: Male

DRUGS (4)
  1. ETOPOSIDE [Suspect]
  2. CYCLOPHOSPHAMIDE [Suspect]
  3. CISPLATIN [Suspect]
  4. VINCRISTINE [Suspect]
     Dosage: TWO DOSES

REACTIONS (1)
  - DEAFNESS [None]
